FAERS Safety Report 18008092 (Version 3)
Quarter: 2020Q4

REPORT INFORMATION
  Report Type: Spontaneous
  Country: DE (occurrence: DE)
  Receive Date: 20200710
  Receipt Date: 20201119
  Transmission Date: 20210113
  Serious: No
  Sender: FDA-Public Use
  Company Number: DE-JNJFOC-20200704665

PATIENT
  Sex: Female

DRUGS (2)
  1. DUROGESIC SMAT [Suspect]
     Active Substance: FENTANYL
     Indication: PRODUCT USED FOR UNKNOWN INDICATION
     Dosage: STRENGTH: 75.00 MCG/HR
     Route: 062
  2. DUROGESIC SMAT [Suspect]
     Active Substance: FENTANYL

REACTIONS (3)
  - Underdose [Unknown]
  - Product packaging issue [Unknown]
  - Product adhesion issue [Unknown]

NARRATIVE: CASE EVENT DATE: 20200702
